FAERS Safety Report 21746664 (Version 2)
Quarter: 2023Q1

REPORT INFORMATION
  Report Type: Spontaneous
  Country: US (occurrence: US)
  Receive Date: 20221219
  Receipt Date: 20230101
  Transmission Date: 20230417
  Serious: Yes (Life-Threatening, Hospitalization, Other)
  Sender: FDA-Public Use
  Company Number: US-BRISTOL-MYERS SQUIBB COMPANY-2022-151678

PATIENT
  Age: 58 Year
  Sex: Female
  Weight: 71 kg

DRUGS (36)
  1. ABECMA [Suspect]
     Active Substance: IDECABTAGENE VICLEUCEL
     Indication: Plasma cell myeloma
     Dosage: ONE TIME DOSE (374.19 X 10 ^6 CAR + T CELLS)
     Route: 042
     Dates: start: 20220801, end: 20220801
  2. FLUDARABINE [Concomitant]
     Active Substance: FLUDARABINE PHOSPHATE
     Indication: Plasma cell myeloma
     Dosage: 47 MG IV ON DAYS -5, -4, -3
     Route: 042
     Dates: start: 20220727, end: 20220729
  3. CYCLOPHOSPHAMIDE [Concomitant]
     Active Substance: CYCLOPHOSPHAMIDE
     Indication: Plasma cell myeloma
     Dosage: 470MG IV ON DAYS -5, -4, -3
     Route: 042
     Dates: start: 20220727, end: 20220729
  4. SULFAMETHOXAZOLE [Concomitant]
     Active Substance: SULFAMETHOXAZOLE
     Indication: Prophylaxis
  5. ACYCLOVIR [Concomitant]
     Active Substance: ACYCLOVIR
     Indication: Prophylaxis
     Dosage: STOP DATE POST DISCHARGE
     Route: 048
     Dates: start: 20220801
  6. CIPROFLOXACIN [Concomitant]
     Active Substance: CIPROFLOXACIN
     Indication: Prophylaxis
     Route: 048
     Dates: start: 20220801, end: 20220803
  7. FLUOXETINE [Concomitant]
     Active Substance: FLUOXETINE HYDROCHLORIDE
     Indication: Product used for unknown indication
     Dosage: STARTED ON PRE-HOSPITAL, STOPPED ON POST-HOSPITAL, HOME MED
     Route: 048
  8. HYDROMORPHONE [Concomitant]
     Active Substance: HYDROMORPHONE
     Indication: Pain
     Dosage: 0.5 TO 2 MG PRN
     Route: 042
  9. LORAZEPAM [Concomitant]
     Active Substance: LORAZEPAM
     Indication: Product used for unknown indication
     Dosage: 0.5 TO 1 MG PRN
     Route: 048
     Dates: start: 20220801, end: 20220826
  10. ALLOPURINOL [Concomitant]
     Active Substance: ALLOPURINOL
     Indication: Prophylaxis
     Route: 048
     Dates: start: 20220728, end: 20220815
  11. AZTREONAM [Concomitant]
     Active Substance: AZTREONAM
     Indication: Infection
     Dosage: 2 GM Q 8 HRS (1 DOSE)
     Route: 042
     Dates: start: 20220816, end: 20220816
  12. BUMETANIDE [Concomitant]
     Active Substance: BUMETANIDE
     Indication: Oedema
     Dosage: IVP (2 DOSES)
     Dates: start: 20220829, end: 20220902
  13. CALCIUM [Concomitant]
     Active Substance: CALCIUM
     Indication: Hypocalcaemia
     Dosage: STARTED DURING ENTIRE ADMISSION , STOPPED ON POST-HOSPITAL
  14. CEFEPIME HYDROCHLORIDE [Concomitant]
     Active Substance: CEFEPIME HYDROCHLORIDE
     Indication: Antibiotic therapy
     Dosage: -2 GM Q 12 HOURS
     Route: 042
     Dates: start: 20220803, end: 20220828
  15. DEXAMETHASONE [Concomitant]
     Active Substance: DEXAMETHASONE
     Indication: Neurotoxicity
     Dosage: 4-10 MG Q 6 HRS IVP
     Route: 042
     Dates: start: 20220809, end: 20220815
  16. DIPHENHYDRAMINE [Concomitant]
     Active Substance: DIPHENHYDRAMINE
     Indication: Neurotoxicity
     Dosage: 25MG PRN, IVP PRE-CART, ? PRE-PLATELET
  17. LOMOTIL [Concomitant]
     Active Substance: ATROPINE SULFATE\DIPHENOXYLATE HYDROCHLORIDE
     Indication: Diarrhoea
     Dosage: PRN
     Route: 048
  18. FLUCONAZOLE [Concomitant]
     Active Substance: FLUCONAZOLE
     Indication: Prophylaxis
     Route: 042
     Dates: start: 20220727, end: 20220824
  19. LASIX [Concomitant]
     Active Substance: FUROSEMIDE
     Indication: Product used for unknown indication
     Dosage: PRN
  20. INSULIN NPH [INSULIN ISOPHANE PORCINE] [Concomitant]
     Indication: Product used for unknown indication
     Dosage: STARTED ON PRE-HOSPITAL, STOPPED ON POST HOSPITAL
     Route: 058
  21. LANSOPRAZOLE [Concomitant]
     Active Substance: LANSOPRAZOLE
     Indication: Gastrooesophageal reflux disease
     Route: 048
     Dates: start: 20220823, end: 20220909
  22. PANTOPRAZOLE [Concomitant]
     Active Substance: PANTOPRAZOLE
     Indication: Gastrooesophageal reflux disease
     Dosage: IVP
     Dates: start: 20220728, end: 20220821
  23. LEVETIRACETAM [Concomitant]
     Active Substance: LEVETIRACETAM
     Indication: Seizure prophylaxis
     Dosage: IVP AND ORAL
     Route: 048
     Dates: start: 20220727, end: 20220823
  24. MAGNESIUM SULFATE [Concomitant]
     Active Substance: MAGNESIUM SULFATE
     Indication: Blood magnesium decreased
     Dosage: PRN
     Route: 042
  25. MELATONIN [Concomitant]
     Active Substance: MELATONIN
     Indication: Product used for unknown indication
     Dosage: 6-9 MG AT HS
     Route: 048
  26. MEROPENEM [Concomitant]
     Active Substance: MEROPENEM
     Indication: Product used for unknown indication
     Dosage: 1 GM Q 8 HRS
     Dates: start: 20220816, end: 20220822
  27. METOPROLOL [Concomitant]
     Active Substance: METOPROLOL
     Indication: Hypertension
     Dosage: STOPPED ON POST-HOSPITAL
     Route: 048
     Dates: start: 20220825
  28. METRONIDAZOLE [Concomitant]
     Active Substance: METRONIDAZOLE
     Indication: Clostridium difficile infection
     Dosage: 500 MG Q 8 HRS
     Route: 042
     Dates: start: 20220822, end: 20220901
  29. MULTIVITAMIN [ASCORBIC ACID;COLECALCIFEROL;DEXPANTHENOL;NICOTINAMIDE;P [Concomitant]
     Indication: Product used for unknown indication
     Route: 048
     Dates: start: 20220819, end: 20220829
  30. ONDANSETRON [Concomitant]
     Active Substance: ONDANSETRON
     Indication: Prophylaxis
     Route: 048
  31. POTASSIUM CHLORIDE [Concomitant]
     Active Substance: POTASSIUM CHLORIDE
     Indication: Product used for unknown indication
     Dosage: PRN
     Route: 042
  32. POTASSIUM PHOSPHATE [Concomitant]
     Active Substance: POTASSIUM PHOSPHATE
     Indication: Product used for unknown indication
     Dosage: PRN
     Route: 042
  33. PROCHLORPERAZINE [Concomitant]
     Active Substance: PROCHLORPERAZINE
     Indication: Product used for unknown indication
     Dosage: X 3 DOSES ONLY
     Route: 042
     Dates: start: 20220728, end: 20220729
  34. TOCILIZUMAB [Concomitant]
     Active Substance: TOCILIZUMAB
     Indication: Cytokine release syndrome
     Dosage: IV X1
     Route: 042
     Dates: start: 20220806, end: 20220806
  35. TRANEXAMIC ACID [Concomitant]
     Active Substance: TRANEXAMIC ACID
     Indication: Product used for unknown indication
  36. VANCOMYCIN [Concomitant]
     Active Substance: VANCOMYCIN
     Indication: Product used for unknown indication
     Dosage: 25 MG Q 6 HOURS
     Route: 048
     Dates: start: 20220804, end: 20220901

REACTIONS (6)
  - Cardiac arrest [Recovered/Resolved]
  - Cytokine release syndrome [Unknown]
  - Neurotoxicity [Unknown]
  - Clostridium difficile colitis [Unknown]
  - Pericardial effusion [Unknown]
  - Thrombocytopenia [Unknown]

NARRATIVE: CASE EVENT DATE: 20220816
